FAERS Safety Report 10488839 (Version 1)
Quarter: 2014Q4

REPORT INFORMATION
  Report Type: Spontaneous
  Country: CN (occurrence: CN)
  Receive Date: 20141002
  Receipt Date: 20141002
  Transmission Date: 20150528
  Serious: Yes (Hospitalization)
  Sender: FDA-Public Use
  Company Number: CN-JNJFOC-20140913619

PATIENT
  Age: 70 Year
  Sex: Female

DRUGS (1)
  1. DURAGESIC [Suspect]
     Active Substance: FENTANYL
     Indication: TUMOUR PAIN
     Route: 062
     Dates: start: 20130715, end: 20130715

REACTIONS (4)
  - Blood pressure decreased [Recovered/Resolved]
  - Miosis [Unknown]
  - Inappropriate schedule of drug administration [Unknown]
  - Somnolence [Recovered/Resolved]

NARRATIVE: CASE EVENT DATE: 20130715
